FAERS Safety Report 8366176-9 (Version None)
Quarter: 2012Q2

REPORT INFORMATION
  Report Type: 
  Country: None (occurrence: None)
  Receive Date: 20120517
  Receipt Date: 20120504
  Transmission Date: 20120825
  Serious: Yes (Other)
  Sender: FDA-Public Use
  Company Number: GB-TEVA-336453ISR

PATIENT
  Age: 68 Year
  Sex: Female
  Weight: 50 kg

DRUGS (9)
  1. ADALIMUMAB [Concomitant]
     Indication: RHEUMATOID ARTHRITIS
     Dosage: 40 MG, QW2
  2. RISEDRONIC ACID [Suspect]
     Indication: OSTEOPOROSIS
     Dosage: 35 MG, QW
     Route: 048
     Dates: start: 20040317
  3. OMEPRAZOLE [Concomitant]
     Indication: GASTROOESOPHAGEAL REFLUX DISEASE
     Dosage: 20 MG, DAILY
     Route: 048
  4. ATENOLOL [Concomitant]
     Indication: HYPERTENSION
     Dosage: 25 MG, DAILY
     Route: 048
  5. BENDROFLUMETHIAZIDE [Concomitant]
     Indication: HYPERTENSION
     Dosage: 2.5 MG, DAILY
     Route: 048
  6. ADCAL [Concomitant]
     Indication: OSTEOPOROSIS
     Dosage: 2 DF, DAILY
     Route: 048
  7. METHOTREXATE [Concomitant]
     Indication: RHEUMATOID ARTHRITIS
     Dosage: 15 MG, QW
     Route: 058
  8. ACETAMINOPHEN [Concomitant]
     Indication: PAIN
     Route: 048
  9. FOLIC ACID [Concomitant]
     Dosage: 5 MG, DAILY (6/7 DAYS)
     Route: 048

REACTIONS (9)
  - EAR PAIN [None]
  - PAIN IN JAW [None]
  - GINGIVAL PAIN [None]
  - BASAL CELL CARCINOMA [None]
  - TOOTH LOSS [None]
  - FACIAL PAIN [None]
  - HUMERUS FRACTURE [None]
  - OSTEONECROSIS OF JAW [None]
  - LOOSE TOOTH [None]
